FAERS Safety Report 16677713 (Version 1)
Quarter: 2019Q3

REPORT INFORMATION
  Report Type: Spontaneous
  Country: IT (occurrence: IT)
  Receive Date: 20190807
  Receipt Date: 20190807
  Transmission Date: 20191004
  Serious: Yes (Other)
  Sender: FDA-Public Use
  Company Number: IT-ROCHE-2367118

PATIENT
  Age: 34 Year
  Sex: Female

DRUGS (1)
  1. OCREVUS [Suspect]
     Active Substance: OCRELIZUMAB
     Indication: MULTIPLE SCLEROSIS
     Route: 065
     Dates: start: 20190627

REACTIONS (4)
  - Palatal oedema [Unknown]
  - Lymphadenopathy [Unknown]
  - Swelling [Not Recovered/Not Resolved]
  - Salivary gland enlargement [Unknown]
